FAERS Safety Report 6407921-9 (Version None)
Quarter: 2009Q4

REPORT INFORMATION
  Report Type: 
  Country: None (occurrence: None)
  Receive Date: 20091016
  Receipt Date: 20091002
  Transmission Date: 20100525
  Serious: Yes (Other)
  Sender: FDA-Public Use
  Company Number: 001740

PATIENT
  Sex: Female

DRUGS (3)
  1. VIMPAT [Suspect]
     Indication: EPILEPSY
     Dosage: (100 MG BID ORAL)
     Route: 048
     Dates: start: 20060814, end: 20090925
  2. LAMOTRIGINE [Concomitant]
  3. KEPPRA [Concomitant]

REACTIONS (4)
  - BALANCE DISORDER [None]
  - DEPRESSION [None]
  - DIZZINESS [None]
  - HEADACHE [None]
